FAERS Safety Report 13356844 (Version 1)
Quarter: 2017Q1

REPORT INFORMATION
  Report Type: Spontaneous
  Country: GB (occurrence: GB)
  Receive Date: 20170321
  Receipt Date: 20170321
  Transmission Date: 20170429
  Serious: Yes (Other)
  Sender: FDA-Public Use
  Company Number: GB-MYLANLABS-2017M1017093

PATIENT

DRUGS (3)
  1. IRBESARTAN. [Suspect]
     Active Substance: IRBESARTAN
     Dosage: UNK
     Dates: start: 20170222
  2. BISOPROLOL [Concomitant]
     Active Substance: BISOPROLOL
     Dosage: HALF IN THE MORNING AND HALF AT NIGHT
  3. INDAPAMIDE. [Concomitant]
     Active Substance: INDAPAMIDE

REACTIONS (1)
  - Blood pressure increased [Unknown]
